FAERS Safety Report 21561581 (Version 2)
Quarter: 2022Q4

REPORT INFORMATION
  Report Type: Spontaneous
  Country: US (occurrence: US)
  Receive Date: 20221107
  Receipt Date: 20221109
  Transmission Date: 20230112
  Serious: No
  Sender: FDA-Public Use
  Company Number: US-PFIZER INC-202201279696

PATIENT
  Age: 80 Year
  Sex: Female
  Weight: 63.05 kg

DRUGS (2)
  1. PAXLOVID [Suspect]
     Active Substance: NIRMATRELVIR\RITONAVIR
     Indication: COVID-19 treatment
     Dosage: [PF-07321332 300 MG]/[RITONAVIR 100 MG]; 2X/DAY
     Dates: start: 20221031
  2. GABAPENTIN [Concomitant]
     Active Substance: GABAPENTIN
     Indication: Polymyalgia rheumatica
     Dosage: 600 MG, DAILY (IN THE MORNING)

REACTIONS (2)
  - Yellow skin [Unknown]
  - Liver disorder [Unknown]

NARRATIVE: CASE EVENT DATE: 20221104
